FAERS Safety Report 23241234 (Version 1)
Quarter: 2023Q4

REPORT INFORMATION
  Report Type: Report from Study
  Country: CN (occurrence: CN)
  Receive Date: 20231129
  Receipt Date: 20231129
  Transmission Date: 20240110
  Serious: Yes (Death, Hospitalization)
  Sender: FDA-Public Use
  Company Number: CN-JNJFOC-20220442292

PATIENT
  Age: 71 Year
  Sex: Male
  Weight: 50 kg

DRUGS (3)
  1. TALQUETAMAB [Suspect]
     Active Substance: TALQUETAMAB
     Indication: Plasma cell myeloma
     Dosage: PRIMING DOSE 1 (0.25 ML/0.5 MG)
     Route: 058
     Dates: start: 20220329, end: 20220329
  2. TALQUETAMAB [Suspect]
     Active Substance: TALQUETAMAB
     Dosage: PRIMING DOSE 2 (1.5 ML/3 MG)
     Route: 058
     Dates: start: 20220406, end: 20220406
  3. TALQUETAMAB [Suspect]
     Active Substance: TALQUETAMAB
     Dosage: C1D1
     Route: 058
     Dates: start: 20220413

REACTIONS (4)
  - Immune effector cell-associated neurotoxicity syndrome [Fatal]
  - Joint swelling [Recovered/Resolved]
  - Bone pain [Recovered/Resolved]
  - Cytokine release syndrome [Recovered/Resolved]

NARRATIVE: CASE EVENT DATE: 20220330
